FAERS Safety Report 4592988-3 (Version None)
Quarter: 2005Q1

REPORT INFORMATION
  Report Type: 
  Country: None (occurrence: None)
  Receive Date: 20050125
  Receipt Date: 20040823
  Transmission Date: 20050727
  Serious: No
  Sender: FDA-Public Use
  Company Number: USA040876334

PATIENT
  Age: 80 Year
  Sex: Male

DRUGS (2)
  1. FORTEO [Suspect]
     Dates: start: 20040201
  2. CALCIUM GLUCONATE [Concomitant]

REACTIONS (2)
  - BONE DENSITY DECREASED [None]
  - SPINAL FRACTURE [None]
